FAERS Safety Report 26201570 (Version 1)
Quarter: 2025Q4

REPORT INFORMATION
  Report Type: Spontaneous
  Country: US (occurrence: US)
  Receive Date: 20251226
  Receipt Date: 20251226
  Transmission Date: 20260118
  Serious: Yes (Death, Hospitalization, Other)
  Sender: TEVA
  Company Number: US-TEVA-VS-3404401

PATIENT
  Age: 75 Year
  Sex: Male

DRUGS (12)
  1. AMIODARONE [Suspect]
     Active Substance: AMIODARONE
     Indication: Product used for unknown indication
     Route: 065
  2. DUPILUMAB [Suspect]
     Active Substance: DUPILUMAB
     Indication: Asthma
     Dosage: QO
     Route: 058
     Dates: start: 20250401
  3. JAKAFI [Suspect]
     Active Substance: RUXOLITINIB
     Indication: Product used for unknown indication
     Dosage: QD
     Route: 065
     Dates: start: 20230628
  4. ELIQUIS [Concomitant]
     Active Substance: APIXABAN
     Indication: Product used for unknown indication
  5. ALDACTONE [Concomitant]
     Active Substance: SPIRONOLACTONE
     Indication: Product used for unknown indication
  6. OXYGEN [Concomitant]
     Active Substance: OXYGEN
     Indication: Product used for unknown indication
  7. PHENYLEPHRINE [Concomitant]
     Active Substance: PHENYLEPHRINE
     Indication: Product used for unknown indication
  8. BUMETANIDE [Concomitant]
     Active Substance: BUMETANIDE
     Indication: Product used for unknown indication
  9. METOLAZONE [Concomitant]
     Active Substance: METOLAZONE
     Indication: Product used for unknown indication
  10. PIPERACILLIN SODIUM [Concomitant]
     Active Substance: PIPERACILLIN SODIUM
     Indication: Product used for unknown indication
  11. ZOSYN [Concomitant]
     Active Substance: PIPERACILLIN SODIUM\TAZOBACTAM SODIUM
     Indication: Product used for unknown indication
  12. TOPROL XL [Concomitant]
     Active Substance: METOPROLOL SUCCINATE
     Indication: Product used for unknown indication

REACTIONS (27)
  - Cardiogenic shock [Fatal]
  - Lactic acidosis [Unknown]
  - Coronary artery disease [Fatal]
  - Hyperbilirubinaemia [Unknown]
  - Septic shock [Fatal]
  - Ischaemic cardiomyopathy [Fatal]
  - Chronic respiratory failure [Unknown]
  - Chronic left ventricular failure [Fatal]
  - Renal impairment [Unknown]
  - Multiple organ dysfunction syndrome [Unknown]
  - Hypoxia [Unknown]
  - Pulmonary congestion [Unknown]
  - Cytopenia [Unknown]
  - Congestive hepatopathy [Unknown]
  - Dyspnoea [Unknown]
  - Hypotension [Unknown]
  - Hypertransaminasaemia [Not Recovered/Not Resolved]
  - Leukocytosis [Unknown]
  - Blood creatinine increased [Unknown]
  - Troponin increased [Unknown]
  - Cardiomegaly [Unknown]
  - Pleural effusion [Unknown]
  - Hepatic function abnormal [Unknown]
  - Infection [Unknown]
  - Hyperuricaemia [Unknown]
  - Blood urea increased [Unknown]
  - Alkalosis [Unknown]

NARRATIVE: CASE EVENT DATE: 20250101
